FAERS Safety Report 16628869 (Version 1)
Quarter: 2019Q3

REPORT INFORMATION
  Report Type: Spontaneous
  Country: US (occurrence: US)
  Receive Date: 20190725
  Receipt Date: 20190725
  Transmission Date: 20191004
  Serious: No
  Sender: FDA-Public Use
  Company Number: US-ELEFSEE PHARMACEUTICALS INTERNATIONAL-US-2019WTD000027

PATIENT
  Age: 32 Year
  Sex: Male
  Weight: 72.56 kg

DRUGS (4)
  1. FENTANYL. [Concomitant]
     Active Substance: FENTANYL
     Indication: PRODUCT USED FOR UNKNOWN INDICATION
     Dosage: 50 MCG, CONTINUOUS
     Route: 061
  2. LAZANDA [Suspect]
     Active Substance: FENTANYL CITRATE
     Indication: DYSAESTHESIA
     Dosage: 100 ?G, ONCE A MONTH
     Route: 045
     Dates: start: 20180330
  3. LAZANDA [Suspect]
     Active Substance: FENTANYL CITRATE
     Indication: AUTONOMIC DYSREFLEXIA
  4. DILAUDID [Concomitant]
     Active Substance: HYDROMORPHONE HYDROCHLORIDE
     Indication: PRODUCT USED FOR UNKNOWN INDICATION
     Dosage: 8MG, 6 TIME A DAY
     Route: 048

REACTIONS (2)
  - Product use issue [Unknown]
  - Product use in unapproved indication [Unknown]

NARRATIVE: CASE EVENT DATE: 20180330
